FAERS Safety Report 4410827-8 (Version None)
Quarter: 2004Q2

REPORT INFORMATION
  Report Type: 
  Country: None (occurrence: None)
  Receive Date: 20040630
  Receipt Date: 20040507
  Transmission Date: 20050107
  Serious: No
  Sender: FDA-Public Use
  Company Number: 04P-163-0259982-00

PATIENT
  Age: 50 Year
  Sex: Female
  Weight: 92.5338 kg

DRUGS (7)
  1. HUMIRA [Suspect]
     Indication: RHEUMATOID ARTHRITIS
     Dosage: 40 MG, 1 IN 2 WK, SUBCUTANEOUS
     Route: 058
     Dates: start: 20040301, end: 20040401
  2. NAPROXEN [Concomitant]
  3. METHOTREXATW SODIUM [Concomitant]
  4. PREDNISONE [Concomitant]
  5. TRAMADOL HYDROCHLORIDE [Concomitant]
  6. FUROSEMIDE [Concomitant]
  7. POTASSIUM CHLORIDE [Concomitant]

REACTIONS (4)
  - DRY MOUTH [None]
  - INFLUENZA LIKE ILLNESS [None]
  - PRURITUS [None]
  - RASH [None]
